FAERS Safety Report 9226628 (Version 2)
Quarter: 2013Q2

REPORT INFORMATION
  Report Type: Spontaneous
  Country: ZA (occurrence: ZA)
  Receive Date: 20130412
  Receipt Date: 20130517
  Transmission Date: 20140414
  Serious: Yes (Hospitalization)
  Sender: FDA-Public Use
  Company Number: ZA-ABBOTT-13X-143-1075371-00

PATIENT
  Age: 6 Year
  Sex: Male

DRUGS (11)
  1. EPILIM [Suspect]
     Indication: CONVULSION
     Route: 048
     Dates: start: 2010
  2. EPILIM [Suspect]
     Route: 048
  3. EPILIM [Suspect]
     Route: 048
     Dates: start: 2012
  4. EPILIM [Suspect]
     Route: 048
     Dates: start: 2013
  5. EPILIM [Suspect]
     Route: 048
     Dates: start: 201302
  6. EPILIM [Suspect]
     Route: 048
  7. EPILIM [Suspect]
     Route: 048
     Dates: start: 20130323
  8. EPILIM [Suspect]
     Route: 048
     Dates: start: 20130325
  9. FLUTICASONE [Concomitant]
     Indication: PRODUCT USED FOR UNKNOWN INDICATION
  10. BUDEFLAM [Concomitant]
     Indication: PRODUCT USED FOR UNKNOWN INDICATION
  11. LAMICTIN [Concomitant]
     Indication: PRODUCT USED FOR UNKNOWN INDICATION

REACTIONS (7)
  - Clumsiness [Unknown]
  - Convulsion [Not Recovered/Not Resolved]
  - Drug level decreased [Not Recovered/Not Resolved]
  - Pollakiuria [Recovered/Resolved]
  - Fall [Unknown]
  - Pyrexia [Unknown]
  - Sinusitis [Unknown]
